FAERS Safety Report 5987712-3 (Version None)
Quarter: 2008Q4

REPORT INFORMATION
  Report Type: 
  Country: None (occurrence: None)
  Receive Date: 20081209
  Receipt Date: 20081208
  Transmission Date: 20090506
  Serious: Yes (Hospitalization)
  Sender: FDA-Public Use
  Company Number: US-B.I. PHARMACEUTICALS,INC./RIDGEFIELD-2008-BP-17176BP

PATIENT
  Sex: Male

DRUGS (12)
  1. SPIRIVA [Suspect]
     Indication: CHRONIC OBSTRUCTIVE PULMONARY DISEASE
     Dates: end: 20080101
  2. ADVAIR HFA [Concomitant]
     Indication: DYSPNOEA
  3. COMBIVENT [Concomitant]
     Indication: DYSPNOEA
  4. ALLOPURINOL [Concomitant]
  5. AMIODARONE HCL [Concomitant]
  6. ZETIA [Concomitant]
  7. LOVASTATIN [Concomitant]
  8. FLOMAX [Concomitant]
  9. COUMADIN [Concomitant]
  10. NORVASC [Concomitant]
  11. FOSRENOL [Concomitant]
  12. LEVOTHYROXINE SODIUM [Concomitant]

REACTIONS (3)
  - DRY MOUTH [None]
  - FALL [None]
  - FEMUR FRACTURE [None]
